FAERS Safety Report 14274092 (Version 2)
Quarter: 2018Q1

REPORT INFORMATION
  Report Type: Spontaneous
  Country: US (occurrence: US)
  Receive Date: 20171212
  Receipt Date: 20180208
  Transmission Date: 20180508
  Serious: No
  Sender: FDA-Public Use
  Company Number: US-JNJFOC-20171201130

PATIENT
  Sex: Female
  Weight: 51.71 kg

DRUGS (2)
  1. MENS ROGAINE EXTRA STRENGTH [Suspect]
     Active Substance: MINOXIDIL
     Route: 061
  2. MENS ROGAINE EXTRA STRENGTH [Suspect]
     Active Substance: MINOXIDIL
     Indication: ALOPECIA
     Route: 061
     Dates: start: 20171116, end: 20171118

REACTIONS (7)
  - Pruritus [Recovered/Resolved]
  - Contraindicated product administered [Unknown]
  - Skin irritation [Recovered/Resolved]
  - Intentional product misuse [Unknown]
  - Skin burning sensation [Recovered/Resolved]
  - Pain of skin [Unknown]
  - Product use issue [Unknown]

NARRATIVE: CASE EVENT DATE: 20171116
